FAERS Safety Report 20378599 (Version 1)
Quarter: 2022Q1

REPORT INFORMATION
  Report Type: Spontaneous
  Country: AU (occurrence: AU)
  Receive Date: 20220126
  Receipt Date: 20220126
  Transmission Date: 20220423
  Serious: Yes (Other)
  Sender: FDA-Public Use
  Company Number: AU-009507513-2201AUS006351

PATIENT
  Age: 81 Year
  Sex: Male

DRUGS (1)
  1. ONCOTICE [Suspect]
     Active Substance: BACILLUS CALMETTE-GUERIN SUBSTRAIN TICE LIVE ANTIGEN
     Indication: Bladder cancer
     Dosage: UNK, THE THIRD CYCLE
     Route: 043
     Dates: start: 20210305

REACTIONS (3)
  - Bladder pain [Unknown]
  - Fluid retention [Unknown]
  - Haematuria [Unknown]

NARRATIVE: CASE EVENT DATE: 20210305
